FAERS Safety Report 22164461 (Version 1)
Quarter: 2023Q2

REPORT INFORMATION
  Report Type: Spontaneous
  Country: FR (occurrence: FR)
  Receive Date: 20230403
  Receipt Date: 20230403
  Transmission Date: 20230722
  Serious: Yes (Hospitalization)
  Sender: FDA-Public Use
  Company Number: FR-AFSSAPS-TO2023000503

PATIENT
  Age: 98 Year
  Sex: Female

DRUGS (1)
  1. FUROSEMIDE [Suspect]
     Active Substance: FUROSEMIDE
     Indication: Cardiac failure
     Dosage: 60 MILLIGRAM, ONCE A DAY
     Route: 048
     Dates: start: 20220223, end: 20220225

REACTIONS (1)
  - Dehydration [Recovered/Resolved]

NARRATIVE: CASE EVENT DATE: 20220225
